FAERS Safety Report 5853764-4 (Version None)
Quarter: 2008Q3

REPORT INFORMATION
  Report Type: 
  Country: None (occurrence: None)
  Receive Date: 20080822
  Receipt Date: 20080814
  Transmission Date: 20090109
  Serious: Yes (Other)
  Sender: FDA-Public Use
  Company Number: CA-AMGEN-QUU295291

PATIENT
  Sex: Female
  Weight: 59 kg

DRUGS (6)
  1. ENBREL [Suspect]
     Indication: RHEUMATOID ARTHRITIS
     Dates: start: 20030716
  2. FOLIC ACID [Concomitant]
  3. AMITRIPTYLINE HCL [Concomitant]
  4. LEFLUNOMIDE [Concomitant]
  5. PLAQUENIL [Concomitant]
  6. ADALAT - SLOW RELEASE [Concomitant]

REACTIONS (5)
  - HYPERTENSION [None]
  - INJECTION SITE PAIN [None]
  - LOSS OF CONSCIOUSNESS [None]
  - OEDEMA PERIPHERAL [None]
  - TINNITUS [None]
